FAERS Safety Report 15504768 (Version 2)
Quarter: 2019Q3

REPORT INFORMATION
  Report Type: Spontaneous
  Country: US (occurrence: US)
  Receive Date: 20181016
  Receipt Date: 20190708
  Transmission Date: 20191004
  Serious: No
  Sender: FDA-Public Use
  Company Number: US-SA-2018SA280779

PATIENT
  Age: 57 Year
  Sex: Male

DRUGS (1)
  1. DUPIXENT [Suspect]
     Active Substance: DUPILUMAB
     Indication: SKIN DISORDER
     Dosage: UNK
     Route: 058
     Dates: start: 201807, end: 2018

REACTIONS (5)
  - Dermatitis [Unknown]
  - Pruritus [Unknown]
  - Erythema [Unknown]
  - Product dose omission [Unknown]
  - Rash macular [Unknown]
